FAERS Safety Report 20331494 (Version 1)
Quarter: 2022Q1

REPORT INFORMATION
  Report Type: Spontaneous
  Country: US (occurrence: None)
  Receive Date: 20220112
  Receipt Date: 20220112
  Transmission Date: 20220423
  Serious: Yes (Other)
  Sender: FDA-Public Use
  Company Number: None

PATIENT
  Age: 51 Year
  Sex: Male
  Weight: 120.7 kg

DRUGS (2)
  1. TOCILIZUMAB [Suspect]
     Active Substance: TOCILIZUMAB
     Indication: COVID-19
     Dosage: FREQUENCY : ONCE;?
     Route: 042
     Dates: start: 20211229, end: 20211229
  2. DEXAMETHASONE [Concomitant]
     Active Substance: DEXAMETHASONE
     Dates: start: 20211229, end: 20220107

REACTIONS (9)
  - Pallor [None]
  - Pyrexia [None]
  - Staphylococcal infection [None]
  - Herpes zoster [None]
  - Leukocytosis [None]
  - Staphylococcus test positive [None]
  - Bacterial infection [None]
  - Dental caries [None]
  - Gingivitis [None]

NARRATIVE: CASE EVENT DATE: 20220108
